FAERS Safety Report 12299606 (Version 1)
Quarter: 2016Q2

REPORT INFORMATION
  Report Type: Spontaneous
  Country: US (occurrence: None)
  Receive Date: 20160422
  Receipt Date: 20160422
  Transmission Date: 20160815
  Serious: Yes (Hospitalization)
  Sender: FDA-Public Use
  Company Number: None

PATIENT
  Age: 11 Year
  Sex: Female
  Weight: 77.9 kg

DRUGS (4)
  1. ETOPOSIDE (VP-16) [Suspect]
     Active Substance: ETOPOSIDE
     Dates: end: 20160405
  2. DAUNORUBICIN [Suspect]
     Active Substance: DAUNORUBICIN
     Dates: end: 20160122
  3. CYTARABINE. [Suspect]
     Active Substance: CYTARABINE
     Dates: end: 20160406
  4. MITOXANTRONE HYDROCHLORIDE. [Suspect]
     Active Substance: MITOXANTRONE HYDROCHLORIDE
     Dates: end: 20160302

REACTIONS (10)
  - Febrile neutropenia [None]
  - Pleural effusion [None]
  - Hypertension [None]
  - Lung infiltration [None]
  - Oedema [None]
  - Hyperammonaemic encephalopathy [None]
  - Staphylococcus test positive [None]
  - Condition aggravated [None]
  - Haemodialysis [None]
  - Conjunctival haemorrhage [None]

NARRATIVE: CASE EVENT DATE: 20160417
